FAERS Safety Report 8226369-8 (Version None)
Quarter: 2012Q1

REPORT INFORMATION
  Report Type: 
  Country: None (occurrence: None)
  Receive Date: 20120321
  Receipt Date: 20120320
  Transmission Date: 20120608
  Serious: Yes (Death)
  Sender: FDA-Public Use
  Company Number: US-VERTEX PHARMACEUTICALS INC.-AE-2012-003299

PATIENT
  Sex: Female
  Weight: 78.542 kg

DRUGS (13)
  1. RIBAVIRIN [Concomitant]
     Route: 048
  2. RANITIDINE [Concomitant]
  3. GABAPENTIN [Concomitant]
  4. RIBAVIRIN [Concomitant]
     Route: 048
  5. INCIVEK [Suspect]
     Indication: HEPATITIS C
     Route: 048
     Dates: start: 20111115, end: 20120101
  6. PEGASYS [Concomitant]
     Indication: HEPATITIS C
     Route: 058
     Dates: start: 20111112, end: 20120101
  7. FOLIC ACID [Concomitant]
  8. LORAZEPAM [Concomitant]
  9. LEVOTHYROXINE SODIUM [Concomitant]
  10. OXYCODONE HCL [Concomitant]
  11. MORPHINE [Concomitant]
  12. RIBAVIRIN [Concomitant]
     Indication: HEPATITIS C
     Route: 048
     Dates: start: 20111112, end: 20120101
  13. VITAMIN E [Concomitant]

REACTIONS (2)
  - THROMBOSIS [None]
  - MYOCARDIAL INFARCTION [None]
